FAERS Safety Report 7995269-0 (Version None)
Quarter: 2011Q4

REPORT INFORMATION
  Report Type: 
  Country: None (occurrence: None)
  Receive Date: 20111220
  Receipt Date: 20111220
  Transmission Date: 20120403
  Serious: No
  Sender: FDA-Public Use
  Company Number: None

PATIENT
  Sex: Female
  Weight: 72.574 kg

DRUGS (1)
  1. RANITIDINE [Suspect]
     Indication: GASTROOESOPHAGEAL REFLUX DISEASE
     Dosage: ONE
     Route: 048
     Dates: start: 20100801, end: 20111219

REACTIONS (5)
  - REACTION TO COLOURING [None]
  - LIP BLISTER [None]
  - BURNING SENSATION [None]
  - LIP SWELLING [None]
  - PRODUCT SUBSTITUTION ISSUE [None]
